FAERS Safety Report 20350777 (Version 1)
Quarter: 2022Q1

REPORT INFORMATION
  Report Type: Spontaneous
  Country: US (occurrence: None)
  Receive Date: 20220117
  Receipt Date: 20220117
  Transmission Date: 20220423
  Serious: No
  Sender: FDA-Public Use
  Company Number: None

PATIENT
  Age: 87 Year
  Sex: Male
  Weight: 91.8 kg

DRUGS (9)
  1. CAPECITABINE [Suspect]
     Active Substance: CAPECITABINE
     Indication: Colon cancer
     Dosage: OTHER FREQUENCY : BID FOR 14/21 DAYS;?
     Route: 048
     Dates: start: 20210504
  2. ELIQUIS [Concomitant]
     Active Substance: APIXABAN
  3. Benazepril 20mg [Concomitant]
  4. TRULICITY [Concomitant]
     Active Substance: DULAGLUTIDE
  5. HYDROCHLOROTHIAZIDE [Concomitant]
     Active Substance: HYDROCHLOROTHIAZIDE
  6. Metoprolol succinate ER 12.5mg [Concomitant]
  7. Lomotil 2.5-0.025mg [Concomitant]
  8. AMMONIUM LACTATE [Concomitant]
     Active Substance: AMMONIUM LACTATE
  9. BETAMETHASONE [Concomitant]
     Active Substance: BETAMETHASONE

REACTIONS (3)
  - Fatigue [None]
  - Dry skin [None]
  - Dry skin [None]

NARRATIVE: CASE EVENT DATE: 20220117
